FAERS Safety Report 20430518 (Version 1)
Quarter: 2022Q1

REPORT INFORMATION
  Report Type: Report from Study
  Country: FR (occurrence: FR)
  Receive Date: 20220204
  Receipt Date: 20220204
  Transmission Date: 20220424
  Serious: Yes (Other)
  Sender: FDA-Public Use
  Company Number: FR-SERVIER-S20009860

PATIENT

DRUGS (4)
  1. ONCASPAR [Suspect]
     Active Substance: PEGASPARGASE
     Indication: Acute lymphocytic leukaemia
     Dosage: 1200 IU, QD, ON DAYS 12 AND 26
     Route: 042
     Dates: start: 20180309, end: 20180326
  2. TN UNSPECIFIED [Concomitant]
     Indication: Acute lymphocytic leukaemia
     Dosage: 1.4 MG, ON DAYS 8, 15, 22 AND 29
     Route: 042
     Dates: start: 20180305, end: 20180326
  3. TN UNSPECIFIED [Concomitant]
     Indication: Acute lymphocytic leukaemia
     Dosage: 5.9 MG, ON DAYS 8-28
     Route: 048
     Dates: start: 20180305, end: 20180325
  4. TN UNSPECIFIED [Concomitant]
     Indication: Acute lymphocytic leukaemia
     Dosage: 12 MG, ON DAYS 13 AND 24
     Route: 037
     Dates: start: 20180310, end: 20180321

REACTIONS (1)
  - Hyperlipidaemia [Recovered/Resolved]

NARRATIVE: CASE EVENT DATE: 20180402
